FAERS Safety Report 4302333-6 (Version None)
Quarter: 2004Q1

REPORT INFORMATION
  Report Type: 
  Country: None (occurrence: None)
  Receive Date: 20040220
  Receipt Date: 20040204
  Transmission Date: 20041129
  Serious: Yes (Death, Hospitalization)
  Sender: FDA-Public Use
  Company Number: A-US2003-03926

PATIENT
  Age: 19 Year
  Sex: Female

DRUGS (6)
  1. TRACLEER [Suspect]
     Indication: PULMONARY HYPERTENSION
     Dosage: SEE IMAGE
     Route: 048
     Dates: start: 20020501, end: 20020601
  2. TRACLEER [Suspect]
     Indication: PULMONARY HYPERTENSION
     Dosage: SEE IMAGE
     Route: 048
     Dates: start: 20020601
  3. FLOLAN [Concomitant]
  4. COUMADIN [Concomitant]
  5. DIGOXIN [Concomitant]
  6. WELLBUTRIN SR [Concomitant]

REACTIONS (16)
  - BILIARY COLIC [None]
  - CARDIAC ARREST [None]
  - CARDIOMEGALY [None]
  - CATHETER SITE INFECTION [None]
  - CHOLECYSTITIS [None]
  - DEPRESSION [None]
  - DISEASE PROGRESSION [None]
  - DYSPNOEA [None]
  - HEPATIC CONGESTION [None]
  - HEPATIC FAILURE [None]
  - NAUSEA [None]
  - PRODUCTIVE COUGH [None]
  - PULMONARY HYPERTENSION [None]
  - PULMONARY OEDEMA [None]
  - TEARFULNESS [None]
  - VOMITING [None]
